FAERS Safety Report 7045315-6 (Version None)
Quarter: 2010Q4

REPORT INFORMATION
  Report Type: 
  Country: None (occurrence: None)
  Receive Date: 20101014
  Receipt Date: 20100813
  Transmission Date: 20110411
  Serious: No
  Sender: FDA-Public Use
  Company Number: US-ALLERGAN-1010535US

PATIENT
  Age: 72 Year
  Sex: Female

DRUGS (1)
  1. LATISSE [Suspect]
     Indication: EYELASH THICKENING
     Dosage: UNK
     Route: 061
     Dates: start: 20100101, end: 20100812

REACTIONS (2)
  - MADAROSIS [None]
  - OVERDOSE [None]
